FAERS Safety Report 8912519 (Version 1)
Quarter: 2012Q4

REPORT INFORMATION
  Report Type: 
  Country: US (occurrence: US)
  Receive Date: 20121115
  Receipt Date: 20121115
  Transmission Date: 20130627
  Serious: No
  Sender: FDA-Public Use
  Company Number: US-ASTRAZENECA-2012SE83980

PATIENT
  Age: 751 Month
  Sex: Male
  Weight: 104.3 kg

DRUGS (8)
  1. SYMBICORT [Suspect]
     Indication: COUGH
     Dosage: 160/4.5 MCG, TWO TIMES A DAY
     Route: 055
     Dates: start: 2004
  2. SYMBICORT [Suspect]
     Indication: OROPHARYNGEAL PAIN
     Dosage: 160/4.5 MCG, TWO TIMES A DAY
     Route: 055
     Dates: start: 2004
  3. LISINOPRIL [Suspect]
     Indication: CARDIAC DISORDER
     Route: 048
     Dates: start: 2004
  4. METOPROLOL ER [Suspect]
     Indication: CARDIAC DISORDER
     Dates: start: 2004
  5. ASPIRIN [Concomitant]
     Indication: CARDIAC DISORDER
     Route: 048
     Dates: start: 2004
  6. ISOSORBIDE ER [Concomitant]
     Indication: CARDIAC DISORDER
     Route: 048
     Dates: start: 2004
  7. NIACIN [Concomitant]
     Indication: BLOOD CHOLESTEROL
     Route: 048
     Dates: start: 2004
  8. WELLCHOL [Concomitant]
     Indication: BLOOD CHOLESTEROL
     Route: 048
     Dates: start: 2004

REACTIONS (3)
  - Cough [Unknown]
  - Oropharyngeal pain [Unknown]
  - Intentional drug misuse [Unknown]
